FAERS Safety Report 15905001 (Version 2)
Quarter: 2019Q3

REPORT INFORMATION
  Report Type: Spontaneous
  Country: JP (occurrence: JP)
  Receive Date: 20190204
  Receipt Date: 20190904
  Transmission Date: 20191004
  Serious: Yes (Other)
  Sender: FDA-Public Use
  Company Number: JP-009507513-1901JPN002827J

PATIENT
  Age: 90 Year
  Sex: Male

DRUGS (3)
  1. TEMODAL [Suspect]
     Active Substance: TEMOZOLOMIDE
     Dosage: 220 MG X 5 DAYS OR LESS/MONTH
     Route: 048
     Dates: start: 20190404
  2. TEMODAL [Suspect]
     Active Substance: TEMOZOLOMIDE
     Indication: MALIGNANT GLIOMA
     Dosage: 100 MILLIGRAM, QD
     Route: 048
     Dates: start: 20190108, end: 20190218
  3. TELMISARTAN. [Suspect]
     Active Substance: TELMISARTAN
     Indication: HYPERTENSION
     Dosage: 40 MILLIGRAM, QD
     Route: 048
     Dates: start: 20181205, end: 20190125

REACTIONS (2)
  - Renal impairment [Unknown]
  - Blood creatinine increased [Recovered/Resolved]

NARRATIVE: CASE EVENT DATE: 201901
